FAERS Safety Report 21566978 (Version 1)
Quarter: 2022Q4

REPORT INFORMATION
  Report Type: Spontaneous
  Country: EG (occurrence: EG)
  Receive Date: 20221108
  Receipt Date: 20221108
  Transmission Date: 20230112
  Serious: Yes (Hospitalization)
  Sender: FDA-Public Use
  Company Number: EG-002147023-NVSC2022EG249671

PATIENT
  Age: 85 Year
  Sex: Male
  Weight: 68 kg

DRUGS (14)
  1. VALSARTAN [Suspect]
     Active Substance: VALSARTAN
     Indication: Product used for unknown indication
     Dosage: 160 MG
     Route: 048
     Dates: start: 20220427, end: 20220502
  2. TORSEMIDE [Suspect]
     Active Substance: TORSEMIDE
     Indication: Oedema peripheral
     Dosage: 10 MG, QD, MORNING
     Route: 048
     Dates: start: 20220409
  3. TORSEMIDE [Suspect]
     Active Substance: TORSEMIDE
     Dosage: 20 MG, QD
     Route: 048
     Dates: start: 20220427, end: 20220502
  4. LUCIDRIL [Concomitant]
     Indication: Dementia Alzheimer^s type
     Dosage: 500 MG, QD
     Route: 065
  5. CHOLEROSE [Concomitant]
     Indication: Hypercholesterolaemia
     Dosage: UNK
     Route: 065
  6. BETNOVATE [Concomitant]
     Active Substance: BETAMETHASONE
     Indication: Product used for unknown indication
     Dosage: UNK
     Route: 065
  7. ALPHINTERN [Concomitant]
     Indication: Product used for unknown indication
     Dosage: 2 DOSAGE FORM, TID
     Route: 048
  8. CALCIUM DOBESILATE [Concomitant]
     Active Substance: CALCIUM DOBESILATE
     Indication: Product used for unknown indication
     Dosage: 1 DOSAGE FORM, Q12H (500)
     Route: 065
     Dates: start: 202204
  9. VENOTEC [Concomitant]
     Indication: Product used for unknown indication
     Dosage: UNK, BID (FOR TWO WEEKS)
     Route: 065
     Dates: start: 20220427
  10. SULBACEF [Concomitant]
     Indication: Product used for unknown indication
     Dosage: 15 MG, Q12H (FOR 5 DAYS)
     Route: 030
  11. LEVOFLOXACIN [Concomitant]
     Active Substance: LEVOFLOXACIN
     Indication: Product used for unknown indication
     Dosage: 500 MG, QD (FOR TEN DAYS)
     Route: 065
     Dates: start: 20220427
  12. MICONAZOLE NITRATE [Concomitant]
     Active Substance: MICONAZOLE NITRATE
     Indication: Mouth ulceration
     Dosage: UNK
     Route: 048
  13. DEXAMETHASONE [Concomitant]
     Active Substance: DEXAMETHASONE
     Indication: Product used for unknown indication
     Dosage: UNK (AMPOULE)
     Route: 042
  14. VITAMIN B COMPLEX [Concomitant]
     Active Substance: CYANOCOBALAMIN\DEXPANTHENOL\NIACINAMIDE\PYRIDOXINE HYDROCHLORIDE\RIBOFLAVIN 5^-PHOSPHATE SODIUM\THIA
     Indication: Product used for unknown indication
     Dosage: UNK (AMPOULE)
     Route: 042

REACTIONS (12)
  - Depressed level of consciousness [Unknown]
  - Hypokalaemia [Unknown]
  - Blood creatinine increased [Unknown]
  - Ammonia increased [Unknown]
  - Dehydration [Unknown]
  - Catheter site haemorrhage [Unknown]
  - Benign prostatic hyperplasia [Unknown]
  - Blood pressure decreased [Recovered/Resolved]
  - Decreased appetite [Unknown]
  - Cognitive disorder [Unknown]
  - Speech disorder [Unknown]
  - Confusional state [Unknown]

NARRATIVE: CASE EVENT DATE: 20220501
